FAERS Safety Report 7573533-7 (Version None)
Quarter: 2011Q2

REPORT INFORMATION
  Report Type: 
  Country: None (occurrence: None)
  Receive Date: 20110627
  Receipt Date: 20110614
  Transmission Date: 20111010
  Serious: Yes (Other)
  Sender: FDA-Public Use
  Company Number: PHHY2011US52841

PATIENT
  Sex: Male

DRUGS (14)
  1. SYNTHROID [Concomitant]
     Dosage: 150 UG, 2 TABLETS IN AM
  2. FLEXERIL [Concomitant]
     Dosage: UNK
  3. SIMVASTATIN [Concomitant]
     Dosage: 40 MG, IN AM
  4. ASPIRIN [Concomitant]
     Dosage: 325 MG, 2X DAY
  5. DUETACT [Concomitant]
     Dosage: 1 DF (GLIMIPERIDE 2MG/ PIOGLITAZONE 30 MG)
  6. ATENOLOL [Concomitant]
     Dosage: 1 DF, QD
  7. GABAPENTIN [Concomitant]
     Dosage: 300 MG, QD
  8. TRAMADOL HCL [Concomitant]
     Dosage: 50 MG, 3X DAY
  9. LISINOPRIL [Concomitant]
     Dosage: 20 MG, 2X DAY
  10. TYLENOL-500 [Concomitant]
     Indication: ARTHRITIS
     Dosage: 650 MG, 3X DAY
  11. EXFORGE [Suspect]
     Indication: HYPERTENSION
     Dosage: 1 DF (320 MG VALSARTAN/ 10 MG AMLODIPINE) QD
  12. CLONIDINE HYDROCHLORIDE [Concomitant]
     Dosage: 3 MG, 3X DAY
  13. SPIRONOLACTONE [Concomitant]
     Dosage: 25 MG, IN AM
  14. COLACE [Concomitant]

REACTIONS (4)
  - BACTERIAL INFECTION [None]
  - CONSTIPATION [None]
  - DIARRHOEA [None]
  - GASTROINTESTINAL INFECTION [None]
